FAERS Safety Report 24081490 (Version 1)
Quarter: 2024Q3

REPORT INFORMATION
  Report Type: Spontaneous
  Country: US (occurrence: US)
  Receive Date: 20240712
  Receipt Date: 20240712
  Transmission Date: 20241016
  Serious: No
  Sender: NOVAST
  Company Number: US-NOVAST LABORATORIES INC.-2023NOV000345

PATIENT

DRUGS (1)
  1. TRI-NYMYO [Suspect]
     Active Substance: ETHINYL ESTRADIOL\NORGESTIMATE
     Indication: Contraception
     Dosage: UNK
     Route: 065
     Dates: start: 20231108

REACTIONS (1)
  - Extra dose administered [Unknown]
